FAERS Safety Report 7772788-3 (Version None)
Quarter: 2011Q3

REPORT INFORMATION
  Report Type: 
  Country: None (occurrence: None)
  Receive Date: 20110922
  Receipt Date: 20100914
  Transmission Date: 20111222
  Serious: No
  Sender: FDA-Public Use
  Company Number: US-ASTRAZENECA-2007UW18781

PATIENT
  Age: 28 Year
  Sex: Female
  Weight: 79.8 kg

DRUGS (10)
  1. SEROQUEL [Suspect]
     Dosage: 25-200 MG
     Route: 048
     Dates: start: 20010614, end: 20021122
  2. LITHIUM [Concomitant]
     Dates: start: 20021205, end: 20030513
  3. SEROQUEL [Suspect]
     Indication: BIPOLAR DISORDER
     Dosage: 25-100 MG
     Route: 048
     Dates: start: 20010614, end: 20021024
  4. SEROQUEL [Suspect]
     Dosage: 25-200 MG
     Route: 048
     Dates: start: 20010614, end: 20021122
  5. ZYPREXA [Concomitant]
     Dosage: 5-10 MG
     Dates: start: 20010314, end: 20010406
  6. ZOLOFT [Concomitant]
     Dates: start: 20021122
  7. SEROQUEL [Suspect]
     Indication: SLEEP DISORDER
     Dosage: 25-100 MG
     Route: 048
     Dates: start: 20010614, end: 20021024
  8. RISPERDAL [Concomitant]
     Indication: BIPOLAR DISORDER
     Dosage: 0.5-6 MG
     Dates: start: 20010101, end: 20030101
  9. DIPHENHYDRAMINE HCL [Concomitant]
     Indication: MOTION SICKNESS
     Dosage: 25-50 MG
     Dates: start: 20010712
  10. DEPAKOTE [Concomitant]
     Dosage: 250-500 MG
     Dates: start: 20010306, end: 20021203

REACTIONS (4)
  - IMPAIRED WORK ABILITY [None]
  - HYPERGLYCAEMIA [None]
  - TYPE 2 DIABETES MELLITUS [None]
  - SOMNOLENCE [None]
